FAERS Safety Report 20569561 (Version 2)
Quarter: 2022Q1

REPORT INFORMATION
  Report Type: Report from Study
  Country: CA (occurrence: CA)
  Receive Date: 20220309
  Receipt Date: 20220314
  Transmission Date: 20220424
  Serious: Yes (Other)
  Sender: FDA-Public Use
  Company Number: CA-ABBVIE-22K-028-4305866-00

PATIENT
  Age: 51 Year
  Sex: Female

DRUGS (4)
  1. HUMIRA [Suspect]
     Active Substance: ADALIMUMAB
     Indication: Uveitis
     Route: 058
     Dates: start: 20190426
  2. COVID-19 VACCINE NOS [Suspect]
     Active Substance: COVID-19 VACCINE NOS
     Indication: COVID-19 prophylaxis
     Dosage: 1ST DOSE
     Route: 030
  3. COVID-19 VACCINE NOS [Suspect]
     Active Substance: COVID-19 VACCINE NOS
     Dosage: 2ND DOSE
     Route: 030
  4. COVID-19 VACCINE NOS [Suspect]
     Active Substance: COVID-19 VACCINE NOS
     Dosage: 3RD DOSE
     Route: 030

REACTIONS (4)
  - Loss of consciousness [Unknown]
  - Cerebrovascular accident [Unknown]
  - Peripheral coldness [Unknown]
  - COVID-19 [Unknown]

NARRATIVE: CASE EVENT DATE: 20220130
